FAERS Safety Report 4956543-5 (Version None)
Quarter: 2006Q1

REPORT INFORMATION
  Report Type: 
  Country: None (occurrence: None)
  Receive Date: 20060329
  Receipt Date: 20051123
  Transmission Date: 20060701
  Serious: Yes (Hospitalization, Disabling)
  Sender: FDA-Public Use
  Company Number: US-MERCK-0511USA04087

PATIENT
  Age: 50 Year
  Sex: Female
  Weight: 118 kg

DRUGS (29)
  1. VIOXX [Suspect]
     Indication: ANALGESIC EFFECT
     Route: 048
     Dates: start: 20000228, end: 20001201
  2. VIOXX [Suspect]
     Route: 048
     Dates: start: 20011130, end: 20011201
  3. VIOXX [Suspect]
     Route: 048
     Dates: start: 20020829, end: 20040901
  4. VIOXX [Suspect]
     Indication: OSTEOARTHRITIS
     Route: 048
     Dates: start: 20000228, end: 20001201
  5. VIOXX [Suspect]
     Route: 048
     Dates: start: 20011130, end: 20011201
  6. VIOXX [Suspect]
     Route: 048
     Dates: start: 20020829, end: 20040901
  7. AMITRIPTYLIN [Concomitant]
     Route: 065
  8. CARBATROL [Concomitant]
     Route: 065
  9. CEPHALEXIN [Concomitant]
     Route: 065
  10. CIPRO [Concomitant]
     Route: 065
  11. CYCLOBENZAPRINE HYDROCHLORIDE [Concomitant]
     Route: 065
  12. DIETHYLPROPION RESINATE [Concomitant]
     Route: 065
     Dates: start: 20000228
  13. ELAVIL [Concomitant]
     Route: 065
     Dates: start: 20030311, end: 20030401
  14. ESTROSTEP [Concomitant]
     Route: 065
  15. FUROSEMIDE [Concomitant]
     Route: 065
     Dates: start: 19880101
  16. HYDROCODONE BITARTRATE + ACETAMINOPHEN [Concomitant]
     Route: 065
  17. HYDROMORPHONE HYDROCHLORIDE [Concomitant]
     Route: 065
  18. KLOR-CON [Concomitant]
     Route: 065
  19. MEDROXYPROGESTERONE ACETATE [Concomitant]
     Route: 065
  20. NAPROXEN [Concomitant]
     Route: 065
  21. NEURONTIN [Concomitant]
     Route: 065
  22. POTASSIUM CHLORIDE [Concomitant]
     Route: 065
  23. PREMARIN [Concomitant]
     Route: 065
     Dates: start: 20000218, end: 20000301
  24. PREVACID [Concomitant]
     Route: 065
  25. SKELAXIN [Concomitant]
     Route: 065
     Dates: start: 20011205, end: 20020201
  26. SULFAMETHOXAZOLE AND TRIMETHOPRIM [Concomitant]
     Route: 065
  27. ULTRACET [Concomitant]
     Route: 065
     Dates: start: 20011130, end: 20020101
  28. TRIMOX [Concomitant]
     Route: 065
  29. WARFARIN [Concomitant]
     Route: 065
     Dates: start: 20030218

REACTIONS (5)
  - ABSCESS [None]
  - DEEP VEIN THROMBOSIS [None]
  - FIBROMYALGIA [None]
  - HYPOKALAEMIA [None]
  - PULMONARY EMBOLISM [None]
